FAERS Safety Report 8426202-5 (Version None)
Quarter: 2012Q2

REPORT INFORMATION
  Report Type: 
  Country: None (occurrence: None)
  Receive Date: 20120611
  Receipt Date: 20120131
  Transmission Date: 20120825
  Serious: No
  Sender: FDA-Public Use
  Company Number: US-MYLANLABS-2012S1002402

PATIENT
  Age: 68 Year
  Sex: Female

DRUGS (4)
  1. CLONAZEPAM [Concomitant]
     Route: 048
  2. CYCLOBENZAPRINE HCL [Suspect]
     Indication: MUSCLE RELAXANT THERAPY
     Route: 048
     Dates: start: 20111101
  3. CLOMIPRAMINE HCL [Concomitant]
     Route: 048
  4. PRILOSEC [Concomitant]
     Route: 048

REACTIONS (1)
  - AMNESIA [None]
